FAERS Safety Report 9071592 (Version 1)
Quarter: 2013Q1

REPORT INFORMATION
  Report Type: Spontaneous
  Country: JP (occurrence: JP)
  Receive Date: 20130129
  Receipt Date: 20130129
  Transmission Date: 20140127
  Serious: Yes (Hospitalization)
  Sender: FDA-Public Use
  Company Number: JP-ROCHE-1147730

PATIENT
  Sex: Female

DRUGS (10)
  1. ACTEMRA [Suspect]
     Indication: RHEUMATOID ARTHRITIS
     Route: 041
     Dates: start: 20111201
  2. ACTEMRA [Suspect]
     Route: 041
     Dates: start: 20111202, end: 20120502
  3. PREDONINE [Concomitant]
     Route: 048
     Dates: start: 200401
  4. BONALON [Concomitant]
     Route: 048
  5. BAKTAR [Concomitant]
     Route: 048
  6. JANUVIA [Concomitant]
     Route: 048
     Dates: start: 20110809, end: 20121019
  7. PARIET [Concomitant]
     Route: 048
     Dates: start: 20110621, end: 20121019
  8. CLARITH [Concomitant]
     Route: 048
     Dates: start: 20120502, end: 20120505
  9. FLOMOX [Concomitant]
     Route: 048
     Dates: start: 20120606, end: 20120613
  10. AUGMENTIN [Concomitant]
     Dosage: AMPC250MG/CVA-K125MG
     Route: 048
     Dates: start: 20120711, end: 20120717

REACTIONS (7)
  - Erythema nodosum [Unknown]
  - Cellulitis [Unknown]
  - Pleural effusion [Unknown]
  - Barrett^s oesophagus [Unknown]
  - Pseudomembranous colitis [Unknown]
  - Large intestine polyp [Unknown]
  - Mycosis fungoides [Recovered/Resolved]
